FAERS Safety Report 12724552 (Version 1)
Quarter: 2016Q3

REPORT INFORMATION
  Report Type: Other
  Country: US (occurrence: US)
  Receive Date: 20160908
  Receipt Date: 20160908
  Transmission Date: 20161109
  Serious: No
  Sender: FDA-Public Use
  Company Number: US-COL_22442_2016

PATIENT
  Sex: Male

DRUGS (3)
  1. COLGATE TOTAL WHITENING [Suspect]
     Active Substance: SODIUM FLUORIDE\TRICLOSAN
     Indication: PRODUCT USED FOR UNKNOWN INDICATION
     Dosage: COVERED THE WHOLE HEAD OF TOOTHBRUSH/BID/
     Route: 048
     Dates: end: 2016
  2. COLGATE TOTAL WHITENING [Suspect]
     Active Substance: SODIUM FLUORIDE\TRICLOSAN
     Dosage: COVERED THE WHOLE HEAD OF TOOTHBRUSH/BID/
     Route: 048
     Dates: start: 2016, end: 2016
  3. COLGATE ENAMEL HEALTH SENSITIVITY RELIEF [Suspect]
     Active Substance: POTASSIUM NITRATE\SODIUM FLUORIDE
     Indication: PRODUCT USED FOR UNKNOWN INDICATION
     Dosage: COVERED THE WHOLE HEAD OF TOOTHBRUSH/BID/
     Route: 048
     Dates: start: 2015, end: 201603

REACTIONS (3)
  - Oropharyngeal pain [Recovered/Resolved]
  - Throat irritation [Recovered/Resolved]
  - Pharyngitis [Recovered/Resolved]

NARRATIVE: CASE EVENT DATE: 2015
